FAERS Safety Report 6468951-4 (Version None)
Quarter: 2009Q4

REPORT INFORMATION
  Report Type: 
  Country: None (occurrence: None)
  Receive Date: 20091203
  Receipt Date: 20080314
  Transmission Date: 20100525
  Serious: Yes (Hospitalization)
  Sender: FDA-Public Use
  Company Number: JP-ELI_LILLY_AND_COMPANY-US_020988274

PATIENT
  Age: 75 Year
  Sex: Female

DRUGS (5)
  1. HUMALOG [Suspect]
     Indication: DIABETES MELLITUS
     Dosage: 13 U, DAILY (1/D)
     Route: 058
     Dates: start: 20020624, end: 20020920
  2. PENFILL N [Concomitant]
     Indication: DIABETES MELLITUS
     Dosage: 5 IU, UNK
     Route: 058
  3. BLOPRESS [Concomitant]
     Dosage: 8 MG, UNK
     Route: 048
  4. FLUITRAN [Concomitant]
     Dosage: 2 MG, UNK
     Route: 048
  5. PANALDINE [Concomitant]
     Dosage: UNK, UNK

REACTIONS (2)
  - OEDEMA PERIPHERAL [None]
  - RASH [None]
